FAERS Safety Report 12635117 (Version 1)
Quarter: 2016Q3

REPORT INFORMATION
  Report Type: Report from Study
  Country: FR (occurrence: FR)
  Receive Date: 20160808
  Receipt Date: 20160808
  Transmission Date: 20161109
  Serious: Yes (Hospitalization, Other)
  Sender: FDA-Public Use
  Company Number: FR-JAZZ-JPI-P-000899

PATIENT
  Age: 61 Year
  Sex: Male

DRUGS (16)
  1. XYREM [Suspect]
     Active Substance: SODIUM OXYBATE
     Dosage: 4.5 G, UNK
     Route: 048
     Dates: start: 20090629
  2. XYREM [Suspect]
     Active Substance: SODIUM OXYBATE
     Indication: NARCOLEPSY
     Dosage: 2.25 G, BID
     Route: 048
     Dates: start: 20061220, end: 20070208
  3. CLOMIPRAMINE [Concomitant]
     Active Substance: CLOMIPRAMINE
     Indication: DEPRESSION
  4. XYREM [Suspect]
     Active Substance: SODIUM OXYBATE
     Dosage: 4.5 G, QD
     Route: 048
     Dates: start: 20120306
  5. XYREM [Suspect]
     Active Substance: SODIUM OXYBATE
     Indication: CATAPLEXY
     Dosage: 4.5 G, BID
     Route: 048
     Dates: start: 20070209, end: 20090603
  6. XYREM [Suspect]
     Active Substance: SODIUM OXYBATE
     Dosage: UNK
  7. XYREM [Suspect]
     Active Substance: SODIUM OXYBATE
     Dosage: 4.5 G, QD
     Route: 048
     Dates: start: 20160630, end: 20160731
  8. MODAFINIL. [Concomitant]
     Active Substance: MODAFINIL
     Indication: CATAPLEXY
  9. METFORMIN EMBONATE [Concomitant]
     Indication: TYPE 2 DIABETES MELLITUS
  10. TRIMETAZIDINE HYDROCHLORIDE [Concomitant]
     Active Substance: TRIMETAZIDINE DIHYDROCHLORIDE
     Indication: PRODUCT USED FOR UNKNOWN INDICATION
  11. FENOFIBRATE. [Concomitant]
     Active Substance: FENOFIBRATE
     Indication: PRODUCT USED FOR UNKNOWN INDICATION
  12. XYREM [Suspect]
     Active Substance: SODIUM OXYBATE
     Dosage: 4.5 G, QD
     Route: 048
     Dates: start: 20120201, end: 20120229
  13. LEVETIRACETAM. [Suspect]
     Active Substance: LEVETIRACETAM
     Indication: PRODUCT USED FOR UNKNOWN INDICATION
  14. XYREM [Suspect]
     Active Substance: SODIUM OXYBATE
     Dosage: 4.5 G, BID
     Route: 048
     Dates: start: 20120301, end: 20120305
  15. CIPROFIBRATE [Concomitant]
     Active Substance: CIPROFIBRATE
     Indication: DYSLIPIDAEMIA
  16. ESOMEPRAZOLE MAGNESIUM. [Concomitant]
     Active Substance: ESOMEPRAZOLE MAGNESIUM
     Indication: ABDOMINAL PAIN UPPER

REACTIONS (10)
  - Pleurisy [Unknown]
  - Disorientation [Unknown]
  - Somnambulism [Recovering/Resolving]
  - Wound [Unknown]
  - Epilepsy [Unknown]
  - Hospitalisation [Unknown]
  - Aggression [Recovering/Resolving]
  - Irritability [Recovering/Resolving]
  - Amnesia [Unknown]
  - Fall [Unknown]

NARRATIVE: CASE EVENT DATE: 2007
